FAERS Safety Report 24457809 (Version 2)
Quarter: 2024Q4

REPORT INFORMATION
  Report Type: Spontaneous
  Country: US (occurrence: US)
  Receive Date: 20241018
  Receipt Date: 20241025
  Transmission Date: 20250114
  Serious: No
  Sender: BIOFRONTERA BIOSCIENCE
  Company Number: US-Biofrontera-2024BIO00127

PATIENT
  Age: 62 Year
  Sex: Male

DRUGS (3)
  1. AMELUZ [Suspect]
     Active Substance: AMINOLEVULINIC ACID HYDROCHLORIDE
     Indication: Actinic keratosis
     Route: 050
     Dates: start: 20240806
  2. MetforminMetformin [Concomitant]
  3. Topical Testorene [Concomitant]
     Route: 050

REACTIONS (2)
  - Eye irritation [Not Recovered/Not Resolved]
  - Ocular discomfort [Not Recovered/Not Resolved]

NARRATIVE: CASE EVENT DATE: 20240806
